FAERS Safety Report 17325424 (Version 6)
Quarter: 2022Q1

REPORT INFORMATION
  Report Type: Spontaneous
  Country: US (occurrence: US)
  Receive Date: 20200127
  Receipt Date: 20220308
  Transmission Date: 20220424
  Serious: Yes (Hospitalization)
  Sender: FDA-Public Use
  Company Number: US-PFIZER INC-2020035133

PATIENT
  Age: 82 Year
  Sex: Male
  Weight: 65.77 kg

DRUGS (3)
  1. VYNDAMAX [Suspect]
     Active Substance: TAFAMIDIS
     Indication: Amyloidosis senile
     Dosage: 61 MG, DAILY
     Dates: start: 201811
  2. VYNDAMAX [Suspect]
     Active Substance: TAFAMIDIS
     Indication: Paraesthesia
  3. ASPIRIN [Concomitant]
     Active Substance: ASPIRIN
     Dosage: UNK

REACTIONS (1)
  - Chest pain [Not Recovered/Not Resolved]
